FAERS Safety Report 5851787-2 (Version None)
Quarter: 2008Q3

REPORT INFORMATION
  Report Type: 
  Country: None (occurrence: None)
  Receive Date: 20080811
  Receipt Date: 20080619
  Transmission Date: 20090109
  Serious: Yes (Other)
  Sender: FDA-Public Use
  Company Number: 200811573US

PATIENT
  Age: 13 Year
  Sex: Male

DRUGS (5)
  1. APIDRA [Suspect]
     Indication: TYPE 1 DIABETES MELLITUS
     Dosage: 65 U QD
     Dates: start: 20080311
  2. APIDRA [Suspect]
     Indication: TYPE 1 DIABETES MELLITUS
     Dosage: 65 U QD
     Dates: start: 20080311
  3. SYNTHROID [Concomitant]
  4. NASONEX [Concomitant]
  5. CEFPROXIL [Concomitant]

REACTIONS (2)
  - BLOOD GLUCOSE INCREASED [None]
  - DRUG INEFFECTIVE [None]
